FAERS Safety Report 11674003 (Version 2)
Quarter: 2016Q1

REPORT INFORMATION
  Report Type: Report from Study
  Country: US (occurrence: US)
  Receive Date: 20151028
  Receipt Date: 20160106
  Transmission Date: 20160525
  Serious: Yes (Hospitalization)
  Sender: FDA-Public Use
  Company Number: US-009507513-1510USA012395

PATIENT
  Age: 59 Year
  Sex: Female
  Weight: 102 kg

DRUGS (15)
  1. CYCLOBENZAPRINE HYDROCHLORIDE. [Concomitant]
     Active Substance: CYCLOBENZAPRINE HYDROCHLORIDE
  2. TEMODAR [Suspect]
     Active Substance: TEMOZOLOMIDE
     Indication: GLIOBLASTOMA MULTIFORME
     Dosage: UNK
  3. DAPSONE. [Concomitant]
     Active Substance: DAPSONE
  4. LORAZEPAM. [Concomitant]
     Active Substance: LORAZEPAM
  5. LOSARTAN POTASSIUM TABLETS [Concomitant]
     Active Substance: LOSARTAN POTASSIUM
  6. LEVETIRACETAM. [Concomitant]
     Active Substance: LEVETIRACETAM
  7. ONDANSETRON [Concomitant]
     Active Substance: ONDANSETRON
  8. DAPTOMYCIN. [Concomitant]
     Active Substance: DAPTOMYCIN
  9. PANTOPRAZOLE [Concomitant]
     Active Substance: PANTOPRAZOLE SODIUM
  10. PHENYTOIN. [Concomitant]
     Active Substance: PHENYTOIN
  11. RINDOPEPIMUT [Suspect]
     Active Substance: RINDOPEPIMUT
     Indication: GLIOBLASTOMA MULTIFORME
     Dosage: UNK
  12. ACETAMINOPHEN (+) OXYCODONE HYDROCHLORIDE [Concomitant]
     Active Substance: ACETAMINOPHEN\OXYCODONE HYDROCHLORIDE
  13. ACYCLOVIR. [Concomitant]
     Active Substance: ACYCLOVIR
  14. METOPROLOL. [Concomitant]
     Active Substance: METOPROLOL
  15. ROPINIROLE. [Concomitant]
     Active Substance: ROPINIROLE

REACTIONS (2)
  - Cellulitis [Recovered/Resolved]
  - Febrile neutropenia [Recovered/Resolved]

NARRATIVE: CASE EVENT DATE: 20151012
